FAERS Safety Report 22859265 (Version 5)
Quarter: 2024Q1

REPORT INFORMATION
  Report Type: Report from Study
  Country: US (occurrence: US)
  Receive Date: 20230824
  Receipt Date: 20240206
  Transmission Date: 20240410
  Serious: Yes (Other)
  Sender: FDA-Public Use
  Company Number: US-002147023-NVSC2023US182044

PATIENT
  Sex: Male

DRUGS (3)
  1. ENTRESTO [Suspect]
     Active Substance: SACUBITRIL\VALSARTAN
     Indication: Cardiac failure
     Dosage: 1.5 DOSAGE FORM, BID (24/26 MG)
     Route: 048
     Dates: start: 20230703
  2. ENTRESTO [Suspect]
     Active Substance: SACUBITRIL\VALSARTAN
     Dosage: 1 DOSAGE FORM, BID (24/26 MG)
     Route: 048
  3. ENTRESTO [Suspect]
     Active Substance: SACUBITRIL\VALSARTAN
     Dosage: 1 DOSAGE FORM, BID (49/51 MG)
     Route: 048

REACTIONS (10)
  - Diabetes mellitus [Unknown]
  - Choking sensation [Unknown]
  - Dyspnoea [Not Recovered/Not Resolved]
  - Hyperhidrosis [Unknown]
  - Nausea [Recovered/Resolved]
  - Tooth infection [Recovered/Resolved]
  - Dental caries [Recovered/Resolved]
  - Movement disorder [Unknown]
  - Wrong technique in product usage process [Recovered/Resolved]
  - Product dose omission issue [Unknown]

NARRATIVE: CASE EVENT DATE: 20230101
